FAERS Safety Report 8518486 (Version 2)
Quarter: 2012Q4

REPORT INFORMATION
  Report Type: 
  Country: US (occurrence: US)
  Receive Date: 20120417
  Receipt Date: 20121120
  Transmission Date: 20130627
  Serious: No
  Sender: FDA-Public Use
  Company Number: US-ASTRAZENECA-2012SE13673

PATIENT
  Age: 55 Year
  Sex: Male

DRUGS (3)
  1. NEXIUM [Suspect]
     Route: 048
  2. SYMBICORT PMDI [Suspect]
     Dosage: UNKNOWN
     Route: 055
  3. ZANTAC [Concomitant]

REACTIONS (4)
  - Feeling abnormal [Unknown]
  - Feeling abnormal [Unknown]
  - Adverse event [Unknown]
  - Drug dose omission [Unknown]
